FAERS Safety Report 4830817-0 (Version None)
Quarter: 2005Q4

REPORT INFORMATION
  Report Type: 
  Country: None (occurrence: None)
  Receive Date: 20051117
  Receipt Date: 20050930
  Transmission Date: 20060501
  Serious: Yes (Hospitalization)
  Sender: FDA-Public Use
  Company Number: US-MERCK-0510USA00689

PATIENT
  Age: 88 Year
  Sex: Female
  Weight: 59 kg

DRUGS (6)
  1. VIOXX [Suspect]
     Indication: ARTHRALGIA
     Route: 048
     Dates: start: 20000816, end: 20041008
  2. ASPIRIN [Concomitant]
     Route: 065
  3. PLAVIX [Concomitant]
     Route: 065
  4. PREMARIN [Concomitant]
     Route: 065
  5. VITAMIN B (UNSPECIFIED) [Concomitant]
     Route: 065
  6. ASCORBIC ACID [Concomitant]
     Route: 065

REACTIONS (2)
  - EMOTIONAL DISORDER [None]
  - ISCHAEMIC STROKE [None]
